FAERS Safety Report 22671999 (Version 3)
Quarter: 2024Q2

REPORT INFORMATION
  Report Type: Spontaneous
  Country: GB (occurrence: GB)
  Receive Date: 20230705
  Receipt Date: 20240530
  Transmission Date: 20240716
  Serious: Yes (Death, Life-Threatening, Disabling, Other)
  Sender: FDA-Public Use
  Company Number: None

PATIENT
  Sex: Female

DRUGS (1)
  1. ARIPIPRAZOLE [Suspect]
     Active Substance: ARIPIPRAZOLE
     Indication: Product used for unknown indication
     Dosage: UNKNOWN
     Route: 065

REACTIONS (8)
  - Death [Fatal]
  - Fatigue [Unknown]
  - Suicidal ideation [Unknown]
  - Urine abnormality [Unknown]
  - Taste disorder [Unknown]
  - Anosmia [Unknown]
  - Tremor [Unknown]
  - Skin irritation [Unknown]
